FAERS Safety Report 25317986 (Version 1)
Quarter: 2025Q2

REPORT INFORMATION
  Report Type: Spontaneous
  Country: IN (occurrence: IN)
  Receive Date: 20250515
  Receipt Date: 20250515
  Transmission Date: 20250716
  Serious: Yes (Life-Threatening, Hospitalization)
  Sender: MYLAN
  Company Number: IN-MYLANLABS-2025M1040688

PATIENT
  Age: 6 Year
  Sex: Female

DRUGS (12)
  1. PHENYTOIN [Suspect]
     Active Substance: PHENYTOIN
     Indication: Seizure
  2. PHENYTOIN [Suspect]
     Active Substance: PHENYTOIN
     Indication: Leptospirosis
  3. PHENYTOIN [Suspect]
     Active Substance: PHENYTOIN
     Indication: Nervous system disorder
  4. MIDAZOLAM [Suspect]
     Active Substance: MIDAZOLAM
     Indication: Seizure
  5. MIDAZOLAM [Suspect]
     Active Substance: MIDAZOLAM
     Indication: Leptospirosis
  6. MIDAZOLAM [Suspect]
     Active Substance: MIDAZOLAM
     Indication: Nervous system disorder
  7. VALPROIC ACID [Suspect]
     Active Substance: VALPROIC ACID
     Indication: Seizure
  8. VALPROIC ACID [Suspect]
     Active Substance: VALPROIC ACID
     Indication: Leptospirosis
  9. VALPROIC ACID [Suspect]
     Active Substance: VALPROIC ACID
     Indication: Nervous system disorder
  10. LEVETIRACETAM [Suspect]
     Active Substance: LEVETIRACETAM
     Indication: Seizure
  11. LEVETIRACETAM [Suspect]
     Active Substance: LEVETIRACETAM
     Indication: Leptospirosis
  12. LEVETIRACETAM [Suspect]
     Active Substance: LEVETIRACETAM
     Indication: Nervous system disorder

REACTIONS (2)
  - Drug ineffective [Recovered/Resolved]
  - Off label use [Unknown]
